FAERS Safety Report 5005853-4 (Version None)
Quarter: 2006Q2

REPORT INFORMATION
  Report Type: 
  Country: None (occurrence: None)
  Receive Date: 20060517
  Receipt Date: 20060517
  Transmission Date: 20061013
  Serious: No
  Sender: FDA-Public Use
  Company Number: None

PATIENT
  Age: 63 Year
  Sex: Female

DRUGS (2)
  1. LIPITOR [Suspect]
     Indication: DRUG TOXICITY
     Dosage: 1 TAB AT BEDTIME
  2. LIPITOR [Suspect]
     Indication: MUSCULAR WEAKNESS
     Dosage: 1 TAB AT BEDTIME

REACTIONS (3)
  - ARTHRALGIA [None]
  - ARTHROPATHY [None]
  - BACK PAIN [None]
